FAERS Safety Report 14261360 (Version 1)
Quarter: 2017Q4

REPORT INFORMATION
  Report Type: Spontaneous
  Country: US (occurrence: None)
  Receive Date: 20171207
  Receipt Date: 20171207
  Transmission Date: 20180321
  Serious: Yes (Hospitalization)
  Sender: FDA-Public Use
  Company Number: None

PATIENT
  Age: 70 Year
  Sex: Female

DRUGS (16)
  1. XANAX [Concomitant]
     Active Substance: ALPRAZOLAM
  2. LONSURF [Suspect]
     Active Substance: TIPIRACIL HYDROCHLORIDE\TRIFLURIDINE
     Indication: COLON CANCER
     Route: 048
     Dates: start: 20170621
  3. AMITRIPTYLIN [Concomitant]
     Active Substance: AMITRIPTYLINE
  4. PAREGORIC [Concomitant]
     Active Substance: MORPHINE
  5. LIDO/PRIL OCN [Concomitant]
  6. CREON [Concomitant]
     Active Substance: PANCRELIPASE AMYLASE\PANCRELIPASE LIPASE\PANCRELIPASE PROTEASE
  7. KLOR-CON [Concomitant]
     Active Substance: POTASSIUM CHLORIDE
  8. HYDROCO/APAP [Concomitant]
     Active Substance: ACETAMINOPHEN\HYDROCODONE
  9. CYCLOBENZAPR [Concomitant]
     Active Substance: CYCLOBENZAPRINE
  10. OCTREOTIDE 100MCG/ML FRESENIUS KABI [Suspect]
     Active Substance: OCTREOTIDE
     Indication: COLON CANCER
     Route: 058
     Dates: start: 20160116
  11. TRIAMCINOLON [Concomitant]
  12. DILTIAZEM. [Concomitant]
     Active Substance: DILTIAZEM
  13. MIDODRINE [Concomitant]
     Active Substance: MIDODRINE
  14. DIPHEN/TROP [Concomitant]
  15. CIPROFLOXACN [Concomitant]
     Active Substance: CIPROFLOXACIN
  16. ESCITALOPRAM [Concomitant]
     Active Substance: ESCITALOPRAM OXALATE

REACTIONS (1)
  - Abdominal discomfort [None]

NARRATIVE: CASE EVENT DATE: 20171116
